FAERS Safety Report 18690030 (Version 1)
Quarter: 2020Q4

REPORT INFORMATION
  Report Type: Spontaneous
  Country: US (occurrence: US)
  Receive Date: 20201231
  Receipt Date: 20201231
  Transmission Date: 20210114
  Serious: Yes (Other)
  Sender: FDA-Public Use
  Company Number: US-SUNOVION-2020SUN003892

PATIENT
  Sex: Female

DRUGS (4)
  1. LATUDA [Suspect]
     Active Substance: LURASIDONE HYDROCHLORIDE
     Indication: BIPOLAR DISORDER
     Dosage: 60 MG
     Route: 048
  2. QUETIAPINE. [Concomitant]
     Active Substance: QUETIAPINE
     Indication: PRODUCT USED FOR UNKNOWN INDICATION
     Dosage: 100 MG
  3. TRAZODONE [Concomitant]
     Active Substance: TRAZODONE HYDROCHLORIDE
     Indication: PRODUCT USED FOR UNKNOWN INDICATION
     Dosage: 100 MG
  4. METFORMIN [Concomitant]
     Active Substance: METFORMIN HYDROCHLORIDE
     Indication: PRODUCT USED FOR UNKNOWN INDICATION
     Dosage: 2000 MG

REACTIONS (24)
  - Hallucination [Unknown]
  - Insomnia [Unknown]
  - Decreased interest [Unknown]
  - Fatigue [Unknown]
  - Disturbance in attention [Unknown]
  - Manic symptom [Unknown]
  - Anhedonia [Unknown]
  - Abdominal pain [Unknown]
  - Flushing [Unknown]
  - Anxiety [Unknown]
  - Tachyphrenia [Unknown]
  - Flashback [Unknown]
  - Panic attack [Unknown]
  - Chest pain [Unknown]
  - Post-traumatic stress disorder [Unknown]
  - Weight increased [Unknown]
  - Tremor [Unknown]
  - Chills [Unknown]
  - Derealisation [Unknown]
  - Fear of death [Unknown]
  - Logorrhoea [Unknown]
  - Major depression [Unknown]
  - Grandiosity [Unknown]
  - Suicidal ideation [Unknown]
